FAERS Safety Report 8058500-1 (Version None)
Quarter: 2012Q1

REPORT INFORMATION
  Report Type: 
  Country: None (occurrence: None)
  Receive Date: 20120120
  Receipt Date: 20120117
  Transmission Date: 20120608
  Serious: Yes (Other)
  Sender: FDA-Public Use
  Company Number: US-PFIZER INC-2012013526

PATIENT
  Sex: Male
  Weight: 83.9 kg

DRUGS (3)
  1. HYDROCODONE [Concomitant]
     Dosage: UNK
  2. PERCOCET [Concomitant]
     Dosage: UNK
  3. XANAX [Suspect]
     Indication: ANXIETY
     Dosage: 2 MG, 1X/DAY
     Route: 048
     Dates: end: 20110101

REACTIONS (4)
  - TENDON RUPTURE [None]
  - LIGAMENT RUPTURE [None]
  - INSOMNIA [None]
  - ANXIETY [None]
